FAERS Safety Report 9509839 (Version 2)
Quarter: 2013Q3

REPORT INFORMATION
  Report Type: Spontaneous
  Country: US (occurrence: US)
  Receive Date: 20130909
  Receipt Date: 20130909
  Transmission Date: 20140515
  Serious: No
  Sender: FDA-Public Use
  Company Number: US-BRISTOL-MYERS SQUIBB COMPANY-17104829

PATIENT
  Age: 16 Year
  Sex: Female

DRUGS (1)
  1. ABILIFY TABS 10 MG [Suspect]
     Indication: BIPOLAR DISORDER
     Dosage: 2012
     Dates: start: 2012

REACTIONS (6)
  - Dizziness [Unknown]
  - Palpitations [Unknown]
  - Tremor [Unknown]
  - Vision blurred [Unknown]
  - Fatigue [Unknown]
  - Somnolence [Unknown]
